FAERS Safety Report 4388463-1 (Version None)
Quarter: 2004Q2

REPORT INFORMATION
  Report Type: 
  Country: None (occurrence: None)
  Receive Date: 20040624
  Receipt Date: 20040611
  Transmission Date: 20050107
  Serious: Yes (Hospitalization)
  Sender: FDA-Public Use
  Company Number: MAG-2004-0000268

PATIENT
  Age: 10 Year
  Sex: Female

DRUGS (9)
  1. THEOPHYLLINE [Suspect]
     Indication: BRONCHITIS
     Dosage: SEE IMAGE
     Route: 048
     Dates: start: 20040422, end: 20040519
  2. THEOPHYLLINE [Suspect]
     Indication: BRONCHITIS
     Dosage: SEE IMAGE
     Route: 048
     Dates: start: 20040520, end: 20040520
  3. PROCATEROL HCL [Suspect]
     Indication: BRONCHITIS
     Dosage: SEE IMAGE
     Route: 048
     Dates: start: 20040412, end: 20040519
  4. PROCATEROL HCL [Suspect]
     Indication: BRONCHITIS
     Dosage: SEE IMAGE
     Route: 048
     Dates: start: 20040520, end: 20040520
  5. TERBUTALINE SULFATE [Suspect]
     Indication: BRONCHITIS
     Dosage: 2 MG, PRN, ORAL
     Route: 048
     Dates: start: 20040422, end: 20040520
  6. DEXTROMETHORPHAN HYDROBROMIDE (DEXTROMETHORPHAN HYDROBROMIDE) [Concomitant]
  7. AMBROXOL HYDROCHLORIDE (AMBROXOL HYDROCHLORIDE) [Concomitant]
  8. CROMOLYN SODIUM [Concomitant]
  9. BROMHEXINE HYDROCHLORIDE (BROMHEXINE HYDROCHLORIDE) [Concomitant]

REACTIONS (6)
  - BLOOD AMYLASE INCREASED [None]
  - DRUG INTERACTION [None]
  - DRUG LEVEL INCREASED [None]
  - MEDICATION ERROR [None]
  - NAUSEA [None]
  - TREMOR [None]
